FAERS Safety Report 6531433-5 (Version None)
Quarter: 2010Q1

REPORT INFORMATION
  Report Type: 
  Country: None (occurrence: None)
  Receive Date: 20100108
  Receipt Date: 20091218
  Transmission Date: 20100710
  Serious: No
  Sender: FDA-Public Use
  Company Number: A0832339A

PATIENT
  Age: 76 Year
  Sex: Female

DRUGS (1)
  1. TYKERB [Suspect]
     Indication: DRUG USE FOR UNKNOWN INDICATION
     Route: 065
     Dates: start: 20091101, end: 20091208

REACTIONS (4)
  - CONSTIPATION [None]
  - DIARRHOEA [None]
  - FATIGUE [None]
  - NAUSEA [None]
